FAERS Safety Report 5264559-7 (Version None)
Quarter: 2007Q1

REPORT INFORMATION
  Report Type: 
  Country: None (occurrence: None)
  Receive Date: 20061213
  Receipt Date: 20040629
  Transmission Date: 20070707
  Serious: Yes (Other)
  Sender: FDA-Public Use
  Company Number: 2004UW13480

PATIENT
  Age: 63 Year
  Sex: Female
  Weight: 42.1845 kg

DRUGS (8)
  1. IRESSA [Suspect]
     Indication: NON-SMALL CELL LUNG CANCER
     Dates: start: 20040602
  2. DITROPAN [Concomitant]
  3. FOSAMAX [Concomitant]
  4. SUDAFED 12 HOUR [Concomitant]
  5. PLAVIX [Concomitant]
  6. VITAMIN CAP [Concomitant]
  7. METOCLOPRAMIDE [Concomitant]
  8. DEXAMETHASONE [Concomitant]

REACTIONS (2)
  - ERUCTATION [None]
  - GASTROOESOPHAGEAL REFLUX DISEASE [None]
